FAERS Safety Report 5164601-8 (Version None)
Quarter: 2006Q4

REPORT INFORMATION
  Report Type: 
  Country: None (occurrence: None)
  Receive Date: 20061205
  Receipt Date: 20060904
  Transmission Date: 20070319
  Serious: No
  Sender: FDA-Public Use
  Company Number: DE-MERCK-0609DEU00015

PATIENT
  Age: 76 Year
  Sex: Male

DRUGS (3)
  1. PROSCAR [Suspect]
     Indication: BENIGN PROSTATIC HYPERPLASIA
     Route: 048
     Dates: start: 19960530, end: 20060401
  2. PROSCAR [Suspect]
     Route: 048
     Dates: start: 20061101
  3. [THERAPY UNSPECIFIED] [Concomitant]
     Indication: HYPERTENSION
     Route: 065

REACTIONS (3)
  - BREAST DISCOMFORT [None]
  - BREAST PAIN [None]
  - GYNAECOMASTIA [None]
